FAERS Safety Report 13311839 (Version 2)
Quarter: 2017Q1

REPORT INFORMATION
  Report Type: Spontaneous
  Country: AU (occurrence: AU)
  Receive Date: 20170309
  Receipt Date: 20170310
  Transmission Date: 20170428
  Serious: Yes (Other)
  Sender: FDA-Public Use
  Company Number: AU-009507513-1703AUS003170

PATIENT
  Sex: Male
  Weight: 22 kg

DRUGS (2)
  1. SINGULAIR [Suspect]
     Active Substance: MONTELUKAST SODIUM
     Dosage: 5 MG, DAILY
     Route: 048
     Dates: start: 201403, end: 20160810
  2. VENTOLIN [Concomitant]
     Active Substance: ALBUTEROL SULFATE
     Indication: ASTHMA

REACTIONS (1)
  - Abnormal behaviour [Not Recovered/Not Resolved]

NARRATIVE: CASE EVENT DATE: 2016
